FAERS Safety Report 10507245 (Version 1)
Quarter: 2014Q4

REPORT INFORMATION
  Report Type: Spontaneous
  Country: US (occurrence: None)
  Receive Date: 20141008
  Receipt Date: 20141008
  Transmission Date: 20150528
  Serious: Yes (Hospitalization)
  Sender: FDA-Public Use
  Company Number: None

PATIENT
  Age: 58 Year
  Sex: Female
  Weight: 77.11 kg

DRUGS (2)
  1. DULOXETINE 30 MG [Suspect]
     Active Substance: DULOXETINE
     Indication: DEPRESSION
     Dosage: 1 CAP/DAY ONCE DAILY TAKEN BY MOUTH
     Route: 048
     Dates: start: 20140510, end: 20141007
  2. DULOXETINE 30 MG [Suspect]
     Active Substance: DULOXETINE
     Indication: FIBROMYALGIA
     Dosage: 1 CAP/DAY ONCE DAILY TAKEN BY MOUTH
     Route: 048
     Dates: start: 20140510, end: 20141007

REACTIONS (7)
  - Product substitution issue [None]
  - Condition aggravated [None]
  - Hypomania [None]
  - Mood swings [None]
  - Panic attack [None]
  - Agitation [None]
  - Insomnia [None]

NARRATIVE: CASE EVENT DATE: 20140801
